FAERS Safety Report 9025502 (Version 2)
Quarter: 2013Q4

REPORT INFORMATION
  Report Type: Spontaneous
  Country: US (occurrence: US)
  Receive Date: 20130122
  Receipt Date: 20131009
  Transmission Date: 20140711
  Serious: Yes (Other)
  Sender: FDA-Public Use
  Company Number: US-ROCHE-739606

PATIENT
  Age: 24 Year
  Sex: Male
  Weight: 64.92 kg

DRUGS (3)
  1. ACCUTANE [Suspect]
     Indication: ACNE
     Route: 048
     Dates: start: 200209
  2. ACCUTANE [Suspect]
     Route: 048
     Dates: start: 2002, end: 2003
  3. ACCUTANE [Suspect]
     Route: 048
     Dates: start: 200301, end: 200312

REACTIONS (8)
  - Colitis ulcerative [Unknown]
  - Irritable bowel syndrome [Unknown]
  - Depression [Unknown]
  - Inflammatory bowel disease [Unknown]
  - Cheilitis [Unknown]
  - Lip dry [Unknown]
  - Dry skin [Unknown]
  - Chapped lips [Unknown]
